FAERS Safety Report 5785324-8 (Version None)
Quarter: 2008Q2

REPORT INFORMATION
  Report Type: 
  Country: None (occurrence: None)
  Receive Date: 20080605
  Receipt Date: 20080425
  Transmission Date: 20081010
  Serious: No
  Sender: FDA-Public Use
  Company Number: A0724777A

PATIENT
  Age: 42 Year
  Sex: Female
  Weight: 71 kg

DRUGS (1)
  1. ALLI [Suspect]

REACTIONS (2)
  - FREQUENT BOWEL MOVEMENTS [None]
  - INFREQUENT BOWEL MOVEMENTS [None]
